FAERS Safety Report 8614439 (Version 2)
Quarter: 2014Q1

REPORT INFORMATION
  Report Type: Spontaneous
  Country: US (occurrence: None)
  Receive Date: 20120323
  Receipt Date: 20130305
  Transmission Date: 20141002
  Serious: Yes (Hospitalization)
  Sender: FDA-Public Use
  Company Number: 163-21880-11121255

PATIENT
  Age: 78 Year
  Sex: Male
  Weight: 68.49 kg

DRUGS (8)
  1. REVLIMID [Suspect]
     Indication: LYMPHOMA
     Route: 048
     Dates: start: 20111121, end: 20111201
  2. RITUXAN [Concomitant]
  3. NEURONTIN [Concomitant]
  4. NITROFURANTOIN [Concomitant]
  5. PROSCAR [Concomitant]
  6. LOMOTIL [Concomitant]
  7. ALLOPURINOL [Concomitant]
  8. POTASSIUM CHLORIDE [Concomitant]

REACTIONS (3)
  - Febrile neutropenia [None]
  - Disease progression [None]
  - Lymphoma [None]
